FAERS Safety Report 12466282 (Version 1)
Quarter: 2016Q2

REPORT INFORMATION
  Report Type: Spontaneous
  Country: US (occurrence: US)
  Receive Date: 20160614
  Receipt Date: 20160614
  Transmission Date: 20160815
  Serious: No
  Sender: FDA-Public Use
  Company Number: US-CELGENEUS-USA-2016062443

PATIENT
  Age: 25 Year
  Sex: Female

DRUGS (2)
  1. OTEZLA [Suspect]
     Active Substance: APREMILAST
     Indication: MUSCLE DISORDER
  2. OTEZLA [Suspect]
     Active Substance: APREMILAST
     Indication: ARTHROPATHY
     Dosage: 60 MILLIGRAM
     Route: 048
     Dates: start: 201601

REACTIONS (1)
  - Nausea [Recovered/Resolved]

NARRATIVE: CASE EVENT DATE: 20160109
